FAERS Safety Report 10060435 (Version 1)
Quarter: 2014Q2

REPORT INFORMATION
  Report Type: Not Available
  Country: CH (occurrence: CH)
  Receive Date: 20140404
  Receipt Date: 20140404
  Transmission Date: 20141212
  Serious: Yes (Hospitalization)
  Sender: FDA-Public Use
  Company Number: CH-NAPPMUNDI-DEU-2014-0014066

PATIENT
  Age: 52 Year
  Sex: Female

DRUGS (7)
  1. MST CONTINUS [Suspect]
     Indication: NEURALGIA
     Dosage: 30 MG, BID
     Route: 048
     Dates: start: 20140205
  2. MST CONTINUS [Suspect]
     Dosage: UNK MG, BID
     Route: 048
     Dates: start: 20140203
  3. TARGIN TABLETTEN RETARD [Concomitant]
     Indication: PAIN
     Dosage: 5/2.5 MG, BID
     Dates: start: 20140129, end: 20140203
  4. OXYNORM KAPSELN [Concomitant]
     Dosage: 0.5 MG, PRN
     Route: 048
     Dates: start: 20140129, end: 20140203
  5. OMEPRAZOL                          /00661201/ [Concomitant]
     Dosage: 20 MG, UNK
     Dates: end: 201402
  6. BILOL [Concomitant]
     Dosage: 2.5 MG, DAILY
     Route: 048
     Dates: end: 201402
  7. CIPRALEX [Concomitant]
     Dosage: 20 MG, DAILY
     Route: 048

REACTIONS (1)
  - Encephalopathy [Not Recovered/Not Resolved]
